FAERS Safety Report 7413190-3 (Version None)
Quarter: 2011Q2

REPORT INFORMATION
  Report Type: 
  Country: None (occurrence: None)
  Receive Date: 20110405
  Receipt Date: 20110317
  Transmission Date: 20111010
  Serious: Yes (Death)
  Sender: FDA-Public Use
  Company Number: 2011P1005183

PATIENT
  Age: 27 Year
  Sex: Female

DRUGS (3)
  1. ACETAMINOPHEN AND HYDROCODONE BITARTRATE [Suspect]
     Dosage: ;PO
     Route: 048
  2. AMITRIPTYLINE (NO PREF. NAME) [Suspect]
     Dosage: ;PO
     Route: 048
  3. CARISOPRODOL [Suspect]
     Dosage: ;PO
     Route: 048

REACTIONS (1)
  - DRUG ABUSE [None]
